FAERS Safety Report 5267309-3 (Version None)
Quarter: 2007Q1

REPORT INFORMATION
  Report Type: 
  Country: None (occurrence: None)
  Receive Date: 20070316
  Receipt Date: 20070314
  Transmission Date: 20070707
  Serious: Yes (Other)
  Sender: FDA-Public Use
  Company Number: JP-JPN-A200700989

PATIENT
  Age: 7 Year
  Sex: Male

DRUGS (6)
  1. RELENZA [Suspect]
     Indication: INFLUENZA
     Dosage: 10MG TWICE PER DAY
     Route: 055
     Dates: start: 20070308, end: 20070312
  2. ASVERIN [Suspect]
     Indication: DRUG USE FOR UNKNOWN INDICATION
     Dosage: .25G THREE TIMES PER DAY
     Route: 048
     Dates: start: 20070308
  3. TELGIN G [Suspect]
     Indication: DRUG USE FOR UNKNOWN INDICATION
     Route: 048
     Dates: start: 20070308
  4. MUCODYNE [Suspect]
     Indication: DRUG USE FOR UNKNOWN INDICATION
     Dosage: 500MG THREE TIMES PER DAY
     Route: 048
     Dates: start: 20070308
  5. CALONAL [Concomitant]
     Route: 065
  6. NAUZELIN [Concomitant]
     Route: 054

REACTIONS (3)
  - ABNORMAL BEHAVIOUR [None]
  - AGGRESSION [None]
  - HALLUCINATION [None]
